FAERS Safety Report 7981729-5 (Version None)
Quarter: 2011Q4

REPORT INFORMATION
  Report Type: 
  Country: None (occurrence: None)
  Receive Date: 20111215
  Receipt Date: 20111207
  Transmission Date: 20120403
  Serious: Yes (Other)
  Sender: FDA-Public Use
  Company Number: GB-JNJFOC-20111108060

PATIENT
  Sex: Male
  Weight: 31.2 kg

DRUGS (2)
  1. CONCERTA [Suspect]
     Indication: ATTENTION DEFICIT/HYPERACTIVITY DISORDER
     Route: 048
     Dates: start: 20110314, end: 20110325
  2. CONCERTA [Suspect]
     Route: 048
     Dates: start: 20081001, end: 20110216

REACTIONS (3)
  - NEUTROPENIA [None]
  - PSYCHOMOTOR HYPERACTIVITY [None]
  - HEADACHE [None]
